FAERS Safety Report 13190360 (Version 1)
Quarter: 2017Q1

REPORT INFORMATION
  Report Type: Spontaneous
  Country: SE (occurrence: SE)
  Receive Date: 20170206
  Receipt Date: 20170206
  Transmission Date: 20170428
  Serious: Yes (Other)
  Sender: FDA-Public Use
  Company Number: SE-PFIZER INC-2017048254

PATIENT
  Age: 54 Year
  Sex: Male

DRUGS (1)
  1. LESTID [Suspect]
     Active Substance: COLESTIPOL
     Indication: BILE ACID MALABSORPTION
     Dosage: 1 DF, 3X/DAY
     Route: 048
     Dates: start: 201409

REACTIONS (3)
  - Arthralgia [Unknown]
  - Myalgia [Unknown]
  - Tinnitus [Not Recovered/Not Resolved]

NARRATIVE: CASE EVENT DATE: 201410
